FAERS Safety Report 9042777 (Version 1)
Quarter: 2013Q1

REPORT INFORMATION
  Report Type: Report from Study
  Country: BR (occurrence: BR)
  Receive Date: 20130129
  Receipt Date: 20130129
  Transmission Date: 20140127
  Serious: Yes (Other)
  Sender: FDA-Public Use
  Company Number: BR-ABBOTT-13P-020-1040708-00

PATIENT
  Age: 44 Year
  Sex: Female
  Weight: 75 kg

DRUGS (8)
  1. HUMIRA [Suspect]
     Indication: ANKYLOSING SPONDYLITIS
     Route: 058
     Dates: start: 20121003
  2. PREDNISONE [Concomitant]
     Indication: ANKYLOSING SPONDYLITIS
     Dosage: 1 TABLET DAILY
     Route: 048
  3. LEFLUNOMIDE [Concomitant]
     Indication: ANKYLOSING SPONDYLITIS
     Dosage: 1 TABLET DAILY
     Route: 048
     Dates: start: 2010
  4. CALCIUM [Concomitant]
     Indication: ANKYLOSING SPONDYLITIS
     Dosage: 1 TABLET DAILY
     Route: 048
     Dates: start: 2010
  5. VITAMIN A [Concomitant]
     Indication: VITAMIN SUPPLEMENTATION
     Dosage: 2 DROP DAILY
     Route: 048
     Dates: start: 2010
  6. FOLIC ACID [Concomitant]
     Indication: ANKYLOSING SPONDYLITIS
     Route: 048
     Dates: start: 2010
  7. ALENDRONATE [Concomitant]
     Indication: ANKYLOSING SPONDYLITIS
     Route: 048
     Dates: start: 2010
  8. OMEPRAZOLE [Concomitant]
     Indication: GASTRIC DISORDER
     Dosage: 1 TABLET DAILY
     Route: 048
     Dates: start: 2010

REACTIONS (3)
  - Device breakage [Unknown]
  - Foot fracture [Unknown]
  - Blood cholesterol increased [Unknown]
